FAERS Safety Report 25662031 (Version 1)
Quarter: 2025Q3

REPORT INFORMATION
  Report Type: Report from Study
  Country: US (occurrence: US)
  Receive Date: 20250810
  Receipt Date: 20250810
  Transmission Date: 20251021
  Serious: Yes (Other)
  Sender: ALEXION PHARMACEUTICALS
  Company Number: US-AstraZeneca-CH-00817171A

PATIENT
  Sex: Female

DRUGS (2)
  1. EPLONTERSEN SODIUM [Suspect]
     Active Substance: EPLONTERSEN SODIUM
     Route: 065
  2. DAPAGLIFLOZIN [Suspect]
     Active Substance: DAPAGLIFLOZIN
     Route: 065

REACTIONS (4)
  - Cardiac failure [Unknown]
  - Malaise [Unknown]
  - Neuropathy peripheral [Unknown]
  - Cardiac amyloidosis [Unknown]
